FAERS Safety Report 16899469 (Version 1)
Quarter: 2019Q4

REPORT INFORMATION
  Report Type: Report from Study
  Country: US (occurrence: US)
  Receive Date: 20191009
  Receipt Date: 20191009
  Transmission Date: 20200122
  Serious: Yes (Hospitalization, Other)
  Sender: FDA-Public Use
  Company Number: US-JNJFOC-20190814421

PATIENT
  Age: 82 Year
  Sex: Male

DRUGS (8)
  1. IMBRUVICA [Suspect]
     Active Substance: IBRUTINIB
     Indication: CHRONIC LYMPHOCYTIC LEUKAEMIA
     Dosage: 420 MG, QD
     Route: 048
     Dates: start: 20180316, end: 20180622
  2. IMBRUVICA [Suspect]
     Active Substance: IBRUTINIB
     Dosage: 280 MG, QD
     Route: 048
     Dates: start: 20180712
  3. PREDNISONE. [Concomitant]
     Active Substance: PREDNISONE
  4. ECONAZOLE. [Concomitant]
     Active Substance: ECONAZOLE NITRATE
  5. PANTOPRAZOLE [Concomitant]
     Active Substance: PANTOPRAZOLE
  6. MULTIVITAMINS                      /00116001/ [Concomitant]
     Active Substance: VITAMINS
  7. TERBINAFINE. [Concomitant]
     Active Substance: TERBINAFINE
  8. ALLOPURINOL. [Concomitant]
     Active Substance: ALLOPURINOL

REACTIONS (4)
  - Bone marrow failure [Recovered/Resolved]
  - Off label use [Unknown]
  - Pneumonia [Unknown]
  - Incorrect dose administered [Unknown]

NARRATIVE: CASE EVENT DATE: 20180712
